FAERS Safety Report 5195640-9 (Version None)
Quarter: 2006Q4

REPORT INFORMATION
  Report Type: 
  Country: None (occurrence: None)
  Receive Date: 20061222
  Receipt Date: 20061222
  Transmission Date: 20070319
  Serious: Yes (Other)
  Sender: FDA-Public Use
  Company Number: None

PATIENT
  Age: 46 Year
  Sex: Male
  Weight: 79.3795 kg

DRUGS (1)
  1. COLD-EASE LABEL WORN-UNABLE TO LABLE WORN-UNABLE TO READ INFO [Suspect]
     Indication: NASOPHARYNGITIS
     Dosage: NASAL
     Route: 045
     Dates: start: 20061101, end: 20061103

REACTIONS (2)
  - ANOSMIA [None]
  - BURNING SENSATION [None]
